FAERS Safety Report 11889168 (Version 1)
Quarter: 2016Q1

REPORT INFORMATION
  Report Type: Spontaneous
  Country: US (occurrence: US)
  Receive Date: 20160105
  Receipt Date: 20160105
  Transmission Date: 20160526
  Serious: No
  Sender: FDA-Public Use
  Company Number: US-PFIZER INC-2015456190

PATIENT
  Age: 61 Year
  Sex: Male

DRUGS (1)
  1. ATORVASTATIN CALCIUM. [Suspect]
     Active Substance: ATORVASTATIN CALCIUM
     Indication: BLOOD CHOLESTEROL ABNORMAL
     Dosage: UNK
     Dates: end: 2011

REACTIONS (4)
  - Muscle disorder [Recovering/Resolving]
  - Genital disorder male [Recovering/Resolving]
  - Dizziness [Recovering/Resolving]
  - Musculoskeletal discomfort [Recovering/Resolving]
